FAERS Safety Report 23614327 (Version 1)
Quarter: 2024Q1

REPORT INFORMATION
  Report Type: Report from Study
  Country: BR (occurrence: BR)
  Receive Date: 20240311
  Receipt Date: 20240311
  Transmission Date: 20240410
  Serious: Yes (Other)
  Sender: FDA-Public Use
  Company Number: BR-ABBVIE-5477695

PATIENT
  Age: 42 Year
  Sex: Male
  Weight: 78 kg

DRUGS (3)
  1. HUMIRA [Suspect]
     Active Substance: ADALIMUMAB
     Indication: Juvenile idiopathic arthritis
     Route: 058
     Dates: start: 2021
  2. BETAMETHASONE DIPROPIONATE [Suspect]
     Active Substance: BETAMETHASONE DIPROPIONATE
     Indication: Drug ineffective
     Dosage: BETA 30
     Route: 065
     Dates: start: 2022, end: 202307
  3. DERMOSALIC [Concomitant]
     Indication: Product used for unknown indication
     Dosage: (BETAMETHASONE DIPROPIONATE + SALICYLIC ACID)

REACTIONS (9)
  - Drug dependence [Unknown]
  - Skin exfoliation [Unknown]
  - Drug ineffective [Unknown]
  - Swelling face [Unknown]
  - Omphalorrhexis [Unknown]
  - Pruritus [Unknown]
  - Rash [Unknown]
  - Inflammation [Unknown]
  - Skin striae [Recovering/Resolving]

NARRATIVE: CASE EVENT DATE: 20230501
